FAERS Safety Report 12114334 (Version 4)
Quarter: 2016Q1

REPORT INFORMATION
  Report Type: Spontaneous
  Country: AU (occurrence: AU)
  Receive Date: 20160225
  Receipt Date: 20160311
  Transmission Date: 20160526
  Serious: Yes (Death, Hospitalization, Other)
  Sender: FDA-Public Use
  Company Number: AU-SA-2016SA036747

PATIENT
  Age: 72 Year
  Sex: Female

DRUGS (16)
  1. CEFTRIAXONE. [Concomitant]
     Active Substance: CEFTRIAXONE
  2. PRIMAQUINE PHOSPHATE. [Suspect]
     Active Substance: PRIMAQUINE PHOSPHATE
     Indication: PNEUMOCYSTIS JIROVECII PNEUMONIA
     Route: 065
  3. TELMISARTAN. [Concomitant]
     Active Substance: TELMISARTAN
     Indication: PROTEINURIA
  4. PERINDOPRIL [Concomitant]
     Active Substance: PERINDOPRIL
     Indication: PROTEINURIA
  5. OSELTAMIVIR [Concomitant]
     Active Substance: OSELTAMIVIR
     Route: 048
  6. TAZOBACTAM/PIPERACILLIN [Suspect]
     Active Substance: PIPERACILLIN SODIUM\TAZOBACTAM SODIUM
     Indication: PNEUMOCYSTIS JIROVECII PNEUMONIA
     Route: 042
  7. MYCOPHENOLATE MOFETIL. [Suspect]
     Active Substance: MYCOPHENOLATE MOFETIL
     Indication: GLOMERULONEPHROPATHY
     Route: 065
  8. AZITHROMYCIN ANHYDROUS. [Concomitant]
     Active Substance: AZITHROMYCIN ANHYDROUS
  9. PREDNISOLONE. [Suspect]
     Active Substance: PREDNISOLONE
     Indication: PROTEINURIA
     Route: 065
  10. HYDROCHLOROTHIAZIDE. [Concomitant]
     Active Substance: HYDROCHLOROTHIAZIDE
  11. TRIMETHOPRIM/SULFAMETHOXAZOLE [Suspect]
     Active Substance: SULFAMETHOXAZOLE\TRIMETHOPRIM
     Indication: PNEUMOCYSTIS JIROVECII PNEUMONIA
     Route: 065
  12. LINCOMYCIN. [Suspect]
     Active Substance: LINCOMYCIN
     Route: 042
  13. FRUSEMIDE [Concomitant]
     Active Substance: FUROSEMIDE
     Indication: HYPERTENSION
  14. LEFLUNOMIDE. [Suspect]
     Active Substance: LEFLUNOMIDE
     Indication: GLOMERULONEPHROPATHY
     Route: 065
  15. PREDNISOLONE. [Suspect]
     Active Substance: PREDNISOLONE
     Indication: PROTEINURIA
     Route: 065
  16. ATORVASTATIN [Concomitant]
     Active Substance: ATORVASTATIN
     Indication: HYPERCHOLESTEROLAEMIA

REACTIONS (19)
  - Computerised tomogram thorax abnormal [Fatal]
  - Drug ineffective [Fatal]
  - Dyspnoea [Fatal]
  - Product use issue [Unknown]
  - Tachycardia [Fatal]
  - Methaemoglobinaemia [Recovering/Resolving]
  - Pneumocystis jirovecii pneumonia [Fatal]
  - PO2 decreased [Fatal]
  - Oxygen saturation decreased [Recovering/Resolving]
  - Neutrophilia [Fatal]
  - Pyrexia [Fatal]
  - Pneumonitis [Unknown]
  - Tachypnoea [Fatal]
  - Hypoxia [Fatal]
  - Orthopnoea [Fatal]
  - Confusional state [Recovering/Resolving]
  - C-reactive protein increased [Unknown]
  - Chest X-ray abnormal [Fatal]
  - Lung consolidation [Fatal]
